FAERS Safety Report 4599786-5 (Version None)
Quarter: 2005Q1

REPORT INFORMATION
  Report Type: 
  Country: None (occurrence: None)
  Receive Date: 20050303
  Receipt Date: 20050210
  Transmission Date: 20050727
  Serious: Yes (Hospitalization)
  Sender: FDA-Public Use
  Company Number: USA050290522

PATIENT
  Age: 64 Year
  Sex: Female

DRUGS (5)
  1. ZYPREXA [Suspect]
     Dosage: 10 MG AT BEDTIME
     Dates: start: 19970101
  2. AMARYL [Concomitant]
  3. XANAX (ALPRAZOLAM DUM) [Concomitant]
  4. MONOPRIL [Concomitant]
  5. COUMADIN [Concomitant]

REACTIONS (5)
  - DIABETES MELLITUS [None]
  - GALLBLADDER OPERATION [None]
  - POLLAKIURIA [None]
  - RENAL PAIN [None]
  - VISUAL ACUITY REDUCED [None]
